FAERS Safety Report 10550412 (Version 1)
Quarter: 2014Q4

REPORT INFORMATION
  Report Type: Spontaneous
  Country: US (occurrence: US)
  Receive Date: 20141029
  Receipt Date: 20141029
  Transmission Date: 20150529
  Serious: No
  Sender: FDA-Public Use
  Company Number: US-TEVA-446362USA

PATIENT

DRUGS (4)
  1. PROVIGIL [Suspect]
     Active Substance: MODAFINIL
     Dosage: 200 MG FROM DAY 28
  2. PROVIGIL [Suspect]
     Active Substance: MODAFINIL
     Dosage: 50 MG FROM DAY-0 TO DAY 13
  3. PROVIGIL [Suspect]
     Active Substance: MODAFINIL
     Dosage: DECREASED TO 150 MG
  4. PROVIGIL [Suspect]
     Active Substance: MODAFINIL
     Dosage: 100 MG FROM DAY 14 TO DAY 27

REACTIONS (2)
  - Irritability [Recovered/Resolved]
  - Paranoia [Recovered/Resolved]
